FAERS Safety Report 6791244-2 (Version None)
Quarter: 2010Q2

REPORT INFORMATION
  Report Type: 
  Country: None (occurrence: None)
  Receive Date: 20100624
  Receipt Date: 20100610
  Transmission Date: 20101027
  Serious: Yes (Life-Threatening, Hospitalization)
  Sender: FDA-Public Use
  Company Number: GB-MYLANLABS-2010S1007815

PATIENT
  Sex: Female

DRUGS (7)
  1. FLUOXETINE HCL [Suspect]
     Indication: DEPRESSED MOOD
     Route: 048
     Dates: start: 20100321, end: 20100326
  2. ANTIBIOTICS [Suspect]
     Indication: DRUG USE FOR UNKNOWN INDICATION
  3. BENDROFLUAZIDE [Concomitant]
     Indication: DRUG USE FOR UNKNOWN INDICATION
  4. CANDESARTAN [Concomitant]
     Indication: DRUG USE FOR UNKNOWN INDICATION
  5. CO-DYDRAMOL [Concomitant]
     Indication: DRUG USE FOR UNKNOWN INDICATION
  6. FRUSEMIDE [Concomitant]
     Indication: DRUG USE FOR UNKNOWN INDICATION
  7. TRIMETHOPRIM [Concomitant]
     Indication: DRUG USE FOR UNKNOWN INDICATION

REACTIONS (4)
  - DEHYDRATION [None]
  - HEPATIC STEATOSIS [None]
  - MALAISE [None]
  - VOMITING [None]
